FAERS Safety Report 21783256 (Version 1)
Quarter: 2022Q4

REPORT INFORMATION
  Report Type: Spontaneous
  Country: US (occurrence: None)
  Receive Date: 20221224
  Receipt Date: 20221224
  Transmission Date: 20230112
  Serious: Yes (Other)
  Sender: FDA-Public Use
  Company Number: None

PATIENT
  Age: 39 Year
  Sex: Female
  Weight: 68.04 kg

DRUGS (2)
  1. MIRENA [Suspect]
     Active Substance: LEVONORGESTREL
  2. SULFASALAZINE [Concomitant]

REACTIONS (2)
  - Uterine leiomyoma [None]
  - Uterine leiomyosarcoma [None]

NARRATIVE: CASE EVENT DATE: 20221130
